FAERS Safety Report 4836069-X (Version None)
Quarter: 2005Q4

REPORT INFORMATION
  Report Type: 
  Country: None (occurrence: None)
  Receive Date: 20051121
  Receipt Date: 20051121
  Transmission Date: 20060501
  Serious: Yes (Other)
  Sender: FDA-Public Use
  Company Number: None

PATIENT
  Sex: Female
  Weight: 54.8852 kg

DRUGS (1)
  1. KETEK [Suspect]
     Indication: BRONCHITIS
     Dosage: 800 MG DAILY PO
     Route: 048
     Dates: start: 20051005, end: 20051006

REACTIONS (5)
  - ASTHENIA [None]
  - DIPLOPIA [None]
  - HYPOAESTHESIA [None]
  - PARAESTHESIA [None]
  - STRABISMUS [None]
